FAERS Safety Report 16785224 (Version 2)
Quarter: 2019Q3

REPORT INFORMATION
  Report Type: Spontaneous
  Country: US (occurrence: US)
  Receive Date: 20190909
  Receipt Date: 20190930
  Transmission Date: 20191005
  Serious: No
  Sender: FDA-Public Use
  Company Number: US-MYLANLABS-2019M1080378

PATIENT
  Sex: Female

DRUGS (1)
  1. THIORIDAZINE HYDROCHLORIDE TABLETS, USP [Suspect]
     Active Substance: THIORIDAZINE HYDROCHLORIDE
     Indication: HALLUCINATION, AUDITORY
     Dosage: 300 MILLIGRAM, BID
     Route: 048

REACTIONS (1)
  - Therapeutic product effect decreased [Unknown]
